FAERS Safety Report 22308607 (Version 1)
Quarter: 2023Q2

REPORT INFORMATION
  Report Type: Spontaneous
  Country: US (occurrence: None)
  Receive Date: 20230511
  Receipt Date: 20230511
  Transmission Date: 20230721
  Serious: Yes (Other)
  Sender: FDA-Public Use
  Company Number: US-ROCHE-3263011

PATIENT
  Age: 43 Year
  Sex: Female

DRUGS (1)
  1. OCREVUS [Suspect]
     Active Substance: OCRELIZUMAB
     Indication: Relapsing multiple sclerosis
     Dosage: ON 06/JAN/2023, SHE RECEIVED LAST DOSE OF OCRELIZUMAB.?SHE WAS ON THE MAINTENANCE DOSE + THEIR NEXT
     Route: 042

REACTIONS (3)
  - Periorbital oedema [Not Recovered/Not Resolved]
  - Oropharyngeal pain [Unknown]
  - Anaphylactic reaction [Unknown]

NARRATIVE: CASE EVENT DATE: 20230101
